FAERS Safety Report 8899687 (Version 1)
Quarter: 2012Q4

REPORT INFORMATION
  Report Type: 
  Country: US (occurrence: US)
  Receive Date: 20121108
  Receipt Date: 20121108
  Transmission Date: 20130627
  Serious: No
  Sender: FDA-Public Use
  Company Number: US-AMGEN-USASP2012035618

PATIENT
  Age: 28 Year
  Sex: Male

DRUGS (13)
  1. ENBREL [Suspect]
     Indication: PRODUCT USED FOR UNKNOWN INDICATION
     Dosage: 50 mg, qwk
     Route: 058
  2. METHOTREXATE [Concomitant]
     Dosage: 2.5 mg, UNK
  3. IBUPROFEN [Concomitant]
     Dosage: 400 mg, UNK
  4. ACYCLOVIR                          /00587301/ [Concomitant]
     Dosage: 400 mg, UNK
  5. SUDOGEST [Concomitant]
     Dosage: 30 mg, UNK
  6. PREDNISONE [Concomitant]
     Dosage: 5 mg, UNK
  7. LORATADINE [Concomitant]
     Dosage: 10 mg, UNK
  8. OMEPRAZOLE                        /00661201/ [Concomitant]
     Dosage: 20 mg, UNK
  9. PERCOCET                           /00446701/ [Concomitant]
     Dosage: UNK
  10. NEXIUM                             /01479302/ [Concomitant]
     Dosage: 40 mg, UNK
  11. TRAZODONE [Concomitant]
     Dosage: 100 mg, UNK
  12. AMBIEN [Concomitant]
     Dosage: 10 mg, UNK
  13. MULTIVITAMIN                       /00097801/ [Concomitant]
     Dosage: UNK

REACTIONS (1)
  - Euphoric mood [Unknown]
